FAERS Safety Report 5215415-1 (Version None)
Quarter: 2007Q1

REPORT INFORMATION
  Report Type: 
  Country: None (occurrence: None)
  Receive Date: 20070118
  Receipt Date: 20070108
  Transmission Date: 20070707
  Serious: Yes (Other)
  Sender: FDA-Public Use
  Company Number: CLOF-10426

PATIENT
  Age: 36 Year
  Sex: Female

DRUGS (1)
  1. CLOLAR [Suspect]
     Indication: ACUTE LYMPHOCYTIC LEUKAEMIA
     Dosage: 40 MG/M2 IV
     Route: 042
     Dates: start: 20061227, end: 20061231

REACTIONS (2)
  - PAIN IN EXTREMITY [None]
  - SKIN EXFOLIATION [None]
